FAERS Safety Report 5380274-3 (Version None)
Quarter: 2007Q2

REPORT INFORMATION
  Report Type: 
  Country: None (occurrence: None)
  Receive Date: 20070530
  Receipt Date: 20070308
  Transmission Date: 20071010
  Serious: No
  Sender: FDA-Public Use
  Company Number: 2007PV031300

PATIENT
  Age: 47 Year
  Sex: Female
  Weight: 97.0698 kg

DRUGS (2)
  1. BYETTA [Suspect]
     Indication: DIABETES MELLITUS NON-INSULIN-DEPENDENT
     Dosage: 5 MCG; BID; SC
     Route: 058
     Dates: start: 20060601, end: 20070224
  2. PHENTERMINE HYDROCHLORIDE [Concomitant]

REACTIONS (8)
  - INJECTION SITE NODULE [None]
  - INJECTION SITE SWELLING [None]
  - INJECTION SITE WARMTH [None]
  - LIP SWELLING [None]
  - OEDEMA MOUTH [None]
  - RASH MACULAR [None]
  - THROAT TIGHTNESS [None]
  - WEIGHT DECREASED [None]
